FAERS Safety Report 11108838 (Version 1)
Quarter: 2015Q2

REPORT INFORMATION
  Report Type: Report from Study
  Country: GB (occurrence: GB)
  Receive Date: 20150513
  Receipt Date: 20150513
  Transmission Date: 20150821
  Serious: Yes (Other)
  Sender: FDA-Public Use
  Company Number: GB-ROCHE-1572405

PATIENT

DRUGS (6)
  1. CAPECITABINE. [Suspect]
     Active Substance: CAPECITABINE
     Indication: RECTAL CANCER
     Dosage: 625MG/M2/DAY1 BD (DAYS 1 -21)  REPEATED AT 21 DAYS INTERVALS OR  1000MG/M2(DAY 1 TO 14) REPEATED EVE
     Route: 048
  2. 5-FU [Suspect]
     Active Substance: FLUOROURACIL
     Indication: RECTAL CANCER
     Route: 065
  3. EPIRUBICIN [Suspect]
     Active Substance: EPIRUBICIN
     Route: 065
  4. 5-FU [Suspect]
     Active Substance: FLUOROURACIL
     Dosage: REPEATED AT 21 DAYS INTERVALS
     Route: 042
  5. EPIRUBICIN [Suspect]
     Active Substance: EPIRUBICIN
     Indication: RECTAL CANCER
     Route: 042
  6. CISPLATIN. [Suspect]
     Active Substance: CISPLATIN
     Indication: RECTAL CANCER
     Dosage: 80 MG/M2 REPEATED EVERY 3 WEEKS OR 60 MG/M2 REPEATED AT 21 DAYS INTERVALS
     Route: 065

REACTIONS (14)
  - Radiation skin injury [Unknown]
  - Acute kidney injury [Unknown]
  - Anastomotic leak [Unknown]
  - Ascites [Unknown]
  - Ileus [Unknown]
  - Gastrointestinal stoma complication [Unknown]
  - Diarrhoea [Unknown]
  - Intestinal obstruction [Unknown]
  - Pneumonia [Unknown]
  - Arrhythmia [Unknown]
  - Pain [Unknown]
  - Infection [Unknown]
  - Blood disorder [Unknown]
  - Wound [Unknown]
